FAERS Safety Report 18932766 (Version 1)
Quarter: 2021Q1

REPORT INFORMATION
  Report Type: Spontaneous
  Country: US (occurrence: US)
  Receive Date: 20210223
  Receipt Date: 20210223
  Transmission Date: 20210420
  Serious: Yes (Hospitalization)
  Sender: FDA-Public Use
  Company Number: None

PATIENT
  Sex: Female

DRUGS (1)
  1. GLATIRAMER ACETATE 40 MG/ML MYLAN [Suspect]
     Active Substance: GLATIRAMER ACETATE
     Indication: MULTIPLE SCLEROSIS
     Route: 058

REACTIONS (7)
  - Memory impairment [None]
  - Gait disturbance [None]
  - Pneumonia [None]
  - Coronavirus infection [None]
  - Hypotension [None]
  - Skin lesion [None]
  - Pulmonary embolism [None]
